FAERS Safety Report 11374825 (Version 1)
Quarter: 2015Q3

REPORT INFORMATION
  Report Type: Spontaneous
  Country: US (occurrence: None)
  Receive Date: 20150812
  Receipt Date: 20150812
  Transmission Date: 20151125
  Serious: Yes (Hospitalization)
  Sender: FDA-Public Use
  Company Number: None

PATIENT
  Age: 76 Year
  Sex: Male
  Weight: 95.7 kg

DRUGS (18)
  1. RUXOLITINIB 5 MG TABS [Suspect]
     Active Substance: RUXOLITINIB
     Indication: CHRONIC MYELOID LEUKAEMIA
     Route: 048
     Dates: start: 20150616, end: 20150808
  2. SERTRALINE [Concomitant]
     Active Substance: SERTRALINE HYDROCHLORIDE
  3. TAMULOSIN [Concomitant]
     Active Substance: TAMSULOSIN
  4. MULTIVITAMIN [Concomitant]
     Active Substance: VITAMINS
  5. POLYETHYLENE GLYCOL [Concomitant]
     Active Substance: POLYETHYLENE GLYCOLS
  6. FLUTICASONE [Concomitant]
     Active Substance: FLUTICASONE\FLUTICASONE PROPIONATE
  7. LOPERAMIDE [Concomitant]
     Active Substance: LOPERAMIDE
  8. ALBUTEROL. [Concomitant]
     Active Substance: ALBUTEROL
  9. SIMVASTATIN. [Concomitant]
     Active Substance: SIMVASTATIN
  10. ACETAMINOPHEN. [Concomitant]
     Active Substance: ACETAMINOPHEN
  11. ALLOPURINOL. [Concomitant]
     Active Substance: ALLOPURINOL
  12. FUROSEMIDE. [Concomitant]
     Active Substance: FUROSEMIDE
  13. VITAMIN B12-FOLIC ACID [Concomitant]
  14. CELECOXIB. [Concomitant]
     Active Substance: CELECOXIB
  15. FINASTERIDE. [Concomitant]
     Active Substance: FINASTERIDE
  16. HYDROMORPHONE [Concomitant]
     Active Substance: HYDROMORPHONE
  17. POTASSIUM CHLORIDE. [Concomitant]
     Active Substance: POTASSIUM CHLORIDE
  18. TOLTERODINE ER [Concomitant]

REACTIONS (2)
  - Asthenia [None]
  - Body temperature increased [None]

NARRATIVE: CASE EVENT DATE: 20150808
